FAERS Safety Report 5880296-X (Version None)
Quarter: 2008Q3

REPORT INFORMATION
  Report Type: 
  Country: None (occurrence: None)
  Receive Date: 20080912
  Receipt Date: 20080904
  Transmission Date: 20090109
  Serious: Yes (Other)
  Sender: FDA-Public Use
  Company Number: US-PFIZER INC-2008074399

PATIENT
  Sex: Female
  Weight: 75.909 kg

DRUGS (1)
  1. LIPITOR [Suspect]
     Indication: BLOOD CHOLESTEROL INCREASED
     Route: 048

REACTIONS (7)
  - COORDINATION ABNORMAL [None]
  - DISORIENTATION [None]
  - FALL [None]
  - MOTOR DYSFUNCTION [None]
  - MUSCLE DISORDER [None]
  - SENSORY LOSS [None]
  - SLEEP DISORDER [None]
